FAERS Safety Report 8084686-9 (Version None)
Quarter: 2012Q1

REPORT INFORMATION
  Report Type: 
  Country: None (occurrence: None)
  Receive Date: 20120128
  Receipt Date: 20110331
  Transmission Date: 20120608
  Serious: No
  Sender: FDA-Public Use
  Company Number: US-ABBOTT-11P-163-0715508-00

PATIENT
  Sex: Female

DRUGS (2)
  1. ASACOL [Concomitant]
     Indication: PRODUCT USED FOR UNKNOWN INDICATION
  2. HUMIRA [Suspect]
     Indication: CROHN'S DISEASE
     Dosage: 160MG DAY 1, THEN 40MG EVERY 2 WEEKS PER PATIENT
     Route: 058
     Dates: start: 20110314

REACTIONS (2)
  - MEDICATION ERROR [None]
  - INCORRECT DOSE ADMINISTERED [None]
